FAERS Safety Report 9316639 (Version 1)
Quarter: 2013Q2

REPORT INFORMATION
  Report Type: Spontaneous
  Country: US (occurrence: None)
  Receive Date: 20130524
  Receipt Date: 20130524
  Transmission Date: 20140414
  Serious: No
  Sender: FDA-Public Use
  Company Number: AUR-APL-2013-04098

PATIENT
  Age: 60 Year
  Sex: Female

DRUGS (1)
  1. VALPROATE [Suspect]
     Indication: MYOCLONUS
     Dosage: 1000MG, 1D)

REACTIONS (4)
  - Parkinsonism [None]
  - Action tremor [None]
  - Condition aggravated [None]
  - Resting tremor [None]
